FAERS Safety Report 21375287 (Version 1)
Quarter: 2022Q3

REPORT INFORMATION
  Report Type: Spontaneous
  Country: BR (occurrence: BR)
  Receive Date: 20220926
  Receipt Date: 20220926
  Transmission Date: 20221027
  Serious: Yes (Death, Hospitalization, Other)
  Sender: FDA-Public Use
  Company Number: BR-NOVARTISPH-NVSC2022BR216232

PATIENT
  Age: 82 Year
  Sex: Male

DRUGS (10)
  1. RUXOLITINIB [Suspect]
     Active Substance: RUXOLITINIB
     Indication: Myelofibrosis
     Dosage: UNK
     Route: 065
     Dates: start: 201906
  2. RUXOLITINIB [Suspect]
     Active Substance: RUXOLITINIB
     Dosage: 20 MG, Q12H (12/12 H)
     Route: 065
     Dates: start: 20200220
  3. RUXOLITINIB [Suspect]
     Active Substance: RUXOLITINIB
     Dosage: 15 MG, Q12H
     Route: 065
  4. RUXOLITINIB [Suspect]
     Active Substance: RUXOLITINIB
     Dosage: 10 MG, Q12H
     Route: 065
  5. DEFERASIROX [Suspect]
     Active Substance: DEFERASIROX
     Indication: Product used for unknown indication
     Dosage: 500 MG, QD
     Route: 065
     Dates: start: 20191219, end: 20200421
  6. ZOMETA [Suspect]
     Active Substance: ZOLEDRONIC ACID
     Indication: Product used for unknown indication
     Dosage: UNK
     Route: 065
     Dates: end: 202102
  7. ERYTHROPOIETIN [Concomitant]
     Active Substance: ERYTHROPOIETIN
     Indication: Product used for unknown indication
     Dosage: UNK
     Route: 065
     Dates: start: 20200226, end: 20201214
  8. ERYTHROPOIETIN [Concomitant]
     Active Substance: ERYTHROPOIETIN
     Dosage: 40000 IU, QW (CH 15-20 DAYS (01 -02 CH))
     Route: 058
     Dates: start: 202101
  9. HYDROXYUREA [Concomitant]
     Active Substance: HYDROXYUREA
     Indication: Product used for unknown indication
     Dosage: UNK
     Route: 065
     Dates: start: 201807
  10. HYDROXYUREA [Concomitant]
     Active Substance: HYDROXYUREA
     Dosage: 500 MG (EVERY OTHER DAY)
     Route: 065

REACTIONS (16)
  - Death [Fatal]
  - COVID-19 [Unknown]
  - Renal failure [Unknown]
  - Bone marrow failure [Unknown]
  - Megakaryocytes abnormal [Unknown]
  - Haemoglobin decreased [Unknown]
  - Diarrhoea [Unknown]
  - Janus kinase 2 mutation [Unknown]
  - Osteosclerosis [Unknown]
  - Asthenia [Unknown]
  - Discouragement [Unknown]
  - Disturbance in attention [Unknown]
  - Fatigue [Recovering/Resolving]
  - Splenomegaly [Unknown]
  - Adrenal adenoma [Unknown]
  - Dizziness [Unknown]

NARRATIVE: CASE EVENT DATE: 20200621
